FAERS Safety Report 21994120 (Version 4)
Quarter: 2023Q2

REPORT INFORMATION
  Report Type: Report from Study
  Country: CO (occurrence: CO)
  Receive Date: 20230215
  Receipt Date: 20230516
  Transmission Date: 20230722
  Serious: Yes (Hospitalization)
  Sender: FDA-Public Use
  Company Number: CO-002147023-NVSC2022CO144701

PATIENT
  Sex: Female

DRUGS (7)
  1. KISQALI [Suspect]
     Active Substance: RIBOCICLIB
     Indication: Breast cancer metastatic
     Dosage: 600 MG, QD
     Route: 048
     Dates: start: 20220616
  2. KISQALI [Suspect]
     Active Substance: RIBOCICLIB
     Dosage: 200 MG, QD (1)
     Route: 048
     Dates: start: 20220616
  3. KISQALI [Suspect]
     Active Substance: RIBOCICLIB
     Dosage: 400 MG, QD (2 TABLETS)
     Route: 048
     Dates: start: 20220724
  4. KISQALI [Suspect]
     Active Substance: RIBOCICLIB
     Dosage: 200 MG
     Route: 048
  5. KISQALI [Suspect]
     Active Substance: RIBOCICLIB
     Dosage: UNK
     Route: 048
     Dates: end: 20221215
  6. KISQALI [Suspect]
     Active Substance: RIBOCICLIB
     Dosage: 200 MG, QD (21 DAYS)
     Route: 048
  7. FULVESTRANT [Suspect]
     Active Substance: FULVESTRANT
     Indication: Product used for unknown indication
     Dosage: UNK
     Route: 065

REACTIONS (22)
  - Body temperature decreased [Unknown]
  - Malaise [Unknown]
  - Chills [Unknown]
  - Asthenia [Unknown]
  - Flatulence [Unknown]
  - Drug intolerance [Unknown]
  - Liver disorder [Unknown]
  - Tremor [Unknown]
  - Decreased immune responsiveness [Unknown]
  - Transaminases increased [Unknown]
  - Condition aggravated [Unknown]
  - Blood pressure decreased [Unknown]
  - Depression [Unknown]
  - Neck pain [Unknown]
  - Abdominal discomfort [Unknown]
  - Vomiting [Unknown]
  - Headache [Unknown]
  - Nausea [Unknown]
  - Mood altered [Unknown]
  - Memory impairment [Unknown]
  - Myalgia [Unknown]
  - Decreased appetite [Unknown]
